FAERS Safety Report 7107813-6 (Version None)
Quarter: 2010Q4

REPORT INFORMATION
  Report Type: 
  Country: None (occurrence: None)
  Receive Date: 20101117
  Receipt Date: 20101104
  Transmission Date: 20110411
  Serious: Yes (Other)
  Sender: FDA-Public Use
  Company Number: US-BAYER-200913163NA

PATIENT
  Age: 36 Year
  Sex: Female

DRUGS (1)
  1. MIRENA [Suspect]
     Indication: CONTRACEPTION
     Dosage: CONTINUOUS
     Route: 015
     Dates: start: 20080101

REACTIONS (5)
  - ABDOMINAL PAIN LOWER [None]
  - DEVICE DISLOCATION [None]
  - DYSMENORRHOEA [None]
  - FEELING ABNORMAL [None]
  - PAIN [None]
